FAERS Safety Report 9033504 (Version 1)
Quarter: 2013Q1

REPORT INFORMATION
  Report Type: Spontaneous
  Country: US (occurrence: US)
  Receive Date: 20130128
  Receipt Date: 20130128
  Transmission Date: 20140127
  Serious: Yes (Other)
  Sender: FDA-Public Use
  Company Number: US-BAYER-2013-008561

PATIENT
  Sex: 0

DRUGS (2)
  1. ALKA-SELTZER PLUS COLD SPARKLING ORIGINAL [Suspect]
  2. ADVIL COLD + SINUS [Concomitant]

REACTIONS (3)
  - Sinusitis [None]
  - Drug ineffective [None]
  - Headache [None]
